FAERS Safety Report 23626556 (Version 1)
Quarter: 2024Q1

REPORT INFORMATION
  Report Type: Report from Study
  Country: DE (occurrence: DE)
  Receive Date: 20240313
  Receipt Date: 20240313
  Transmission Date: 20240410
  Serious: Yes (Hospitalization)
  Sender: FDA-Public Use
  Company Number: DE-JNJFOC-20240271753

PATIENT
  Age: 7 Year
  Sex: Female
  Weight: 23 kg

DRUGS (2)
  1. METHOTREXATE [Suspect]
     Active Substance: METHOTREXATE
     Indication: Juvenile idiopathic arthritis
     Dosage: 12.5 MILLIGRAM/KILOGRAM
     Route: 065
     Dates: start: 20180410
  2. SIMPONI [Suspect]
     Active Substance: GOLIMUMAB
     Indication: Juvenile idiopathic arthritis
     Dosage: 25 MILLIGRAM, (4 WEEKS), SOLUTION FOR INJECTION IN PRE-FILLED PEN
     Route: 058
     Dates: start: 20220315, end: 20221129

REACTIONS (2)
  - Uveitis [Recovered/Resolved]
  - Drug ineffective [Unknown]

NARRATIVE: CASE EVENT DATE: 20221001
